FAERS Safety Report 7880301-5 (Version None)
Quarter: 2011Q4

REPORT INFORMATION
  Report Type: 
  Country: None (occurrence: None)
  Receive Date: 20111101
  Receipt Date: 20111025
  Transmission Date: 20120403
  Serious: Yes (Death)
  Sender: FDA-Public Use
  Company Number: JP-CEPHALON-2011002662

PATIENT
  Sex: Male

DRUGS (5)
  1. CEFTAZIDIME [Concomitant]
     Dates: start: 20110227, end: 20110330
  2. METHIMAZOLE [Concomitant]
  3. MICAFUNGIN SODIUM [Concomitant]
     Dates: start: 20110227, end: 20110318
  4. BENDAMUSTINE HCL [Suspect]
     Indication: MANTLE CELL LYMPHOMA
     Route: 042
     Dates: start: 20110305, end: 20110306
  5. OMEPRAZOLE SODIUM [Concomitant]
     Dates: start: 20110226, end: 20110506

REACTIONS (1)
  - ENCEPHALITIS HERPES [None]
